FAERS Safety Report 7350576-X (Version None)
Quarter: 2011Q1

REPORT INFORMATION
  Report Type: 
  Country: None (occurrence: None)
  Receive Date: 20110314
  Receipt Date: 20110303
  Transmission Date: 20110831
  Serious: Yes (Hospitalization)
  Sender: FDA-Public Use
  Company Number: US-MERCK-1103USA00621

PATIENT
  Sex: Female

DRUGS (1)
  1. INVANZ [Suspect]
     Indication: GASTROINTESTINAL INFECTION
     Route: 042

REACTIONS (1)
  - HAEMOLYTIC ANAEMIA [None]
